FAERS Safety Report 9135312 (Version 1)
Quarter: 2013Q1

REPORT INFORMATION
  Report Type: Spontaneous
  Country: None (occurrence: US)
  Receive Date: 20130304
  Receipt Date: 20130304
  Transmission Date: 20140127
  Serious: No
  Sender: FDA-Public Use
  Company Number: US-ALLERGAN-1201774US

PATIENT
  Sex: Male

DRUGS (2)
  1. TAZORAC [Suspect]
     Indication: SEBORRHOEA
     Dosage: UNK
     Route: 061
  2. COQ10 [Suspect]
     Indication: HEADACHE

REACTIONS (1)
  - Pruritus generalised [Recovered/Resolved]
